FAERS Safety Report 26100027 (Version 1)
Quarter: 2025Q4

REPORT INFORMATION
  Report Type: Spontaneous
  Country: EU (occurrence: EU)
  Receive Date: 20251128
  Receipt Date: 20251128
  Transmission Date: 20260117
  Serious: Yes (Other)
  Sender: AMGEN
  Company Number: EU-AMGEN-AUTSP2025231088

PATIENT
  Age: 16 Year
  Sex: Male

DRUGS (2)
  1. PROLIA [Suspect]
     Active Substance: DENOSUMAB
     Indication: Duchenne muscular dystrophy
     Dosage: 35 MILLIGRAM (1 MG/KG) EVERY 3-6 MONTHS FOR 7 YEARS (TOTAL 19 DOSES)
     Route: 065
  2. PROLIA [Suspect]
     Active Substance: DENOSUMAB
     Indication: Osteoporosis

REACTIONS (7)
  - Acute kidney injury [Unknown]
  - Osteosclerosis [Unknown]
  - Hypercalcaemia [Recovered/Resolved]
  - Rebound effect [Recovered/Resolved]
  - Bone density decreased [Unknown]
  - Ulna fracture [Unknown]
  - Injury [Unknown]
